FAERS Safety Report 9776021 (Version 1)
Quarter: 2013Q4

REPORT INFORMATION
  Report Type: Spontaneous
  Country: IT (occurrence: IT)
  Receive Date: 20131220
  Receipt Date: 20131220
  Transmission Date: 20140711
  Serious: Yes (Hospitalization)
  Sender: FDA-Public Use
  Company Number: IT-ABBVIE-13P-083-1181575-00

PATIENT
  Age: 12 Year
  Sex: Male

DRUGS (3)
  1. DEPAKIN [Suspect]
     Indication: PETIT MAL EPILEPSY
     Dosage: DAILY
     Route: 048
     Dates: start: 20131031, end: 20131106
  2. RIVOTRIL [Concomitant]
     Indication: PRODUCT USED FOR UNKNOWN INDICATION
     Dates: start: 20131031, end: 20131112
  3. MEPRAL (OMEPRAZOLE) [Concomitant]
     Indication: PRODUCT USED FOR UNKNOWN INDICATION
     Dates: start: 20131031, end: 20131112

REACTIONS (4)
  - Disorientation [Unknown]
  - Amnesia [Unknown]
  - Confusional state [Unknown]
  - Hyperammonaemia [Recovered/Resolved]
